FAERS Safety Report 25592274 (Version 1)
Quarter: 2025Q3

REPORT INFORMATION
  Report Type: Report from Study
  Country: US (occurrence: US)
  Receive Date: 20250722
  Receipt Date: 20250722
  Transmission Date: 20251020
  Serious: Yes (Other)
  Sender: TAKEDA
  Company Number: US-TAKEDA-2022TUS029561

PATIENT
  Age: 67 Year
  Sex: Female

DRUGS (4)
  1. HUMAN IMMUNOGLOBULIN G [Suspect]
     Active Substance: HUMAN IMMUNOGLOBULIN G
     Indication: Primary immunodeficiency syndrome
  2. HUMAN IMMUNOGLOBULIN G [Suspect]
     Active Substance: HUMAN IMMUNOGLOBULIN G
     Indication: Immunodeficiency common variable
  3. STELARA [Concomitant]
     Active Substance: USTEKINUMAB
  4. Covid-19 vaccine [Concomitant]

REACTIONS (4)
  - Psoriatic arthropathy [Unknown]
  - Nasopharyngitis [Unknown]
  - Chronic obstructive pulmonary disease [Unknown]
  - Infusion site pain [Unknown]

NARRATIVE: CASE EVENT DATE: 20220201
